FAERS Safety Report 24210530 (Version 1)
Quarter: 2024Q3

REPORT INFORMATION
  Report Type: Spontaneous
  Country: US (occurrence: US)
  Receive Date: 20240814
  Receipt Date: 20240814
  Transmission Date: 20241016
  Serious: Yes (Other)
  Sender: PFIZER
  Company Number: US-PFIZER INC-202400234828

PATIENT
  Age: 86 Year
  Sex: Male

DRUGS (1)
  1. PENICILLIN G POTASSIUM [Suspect]
     Active Substance: PENICILLIN G POTASSIUM
     Dosage: UNK

REACTIONS (4)
  - Anaphylactic reaction [Unknown]
  - Swelling [Unknown]
  - Urticaria [Unknown]
  - Oropharyngeal discomfort [Unknown]
